FAERS Safety Report 18451880 (Version 2)
Quarter: 2020Q4

REPORT INFORMATION
  Report Type: Spontaneous
  Country: IT (occurrence: IT)
  Receive Date: 20201102
  Receipt Date: 20201207
  Transmission Date: 20210114
  Serious: Yes (Congenital Anomaly, Other)
  Sender: FDA-Public Use
  Company Number: NVSC2020IT291083

PATIENT

DRUGS (2)
  1. TRIMETHOPRIM SULFAMETHOXAZOLE [Suspect]
     Active Substance: SULFAMETHOXAZOLE\TRIMETHOPRIM
     Indication: FOETAL EXPOSURE DURING PREGNANCY
     Dosage: UNK
     Route: 064
  2. CYCLOSPORINE. [Suspect]
     Active Substance: CYCLOSPORINE
     Indication: FOETAL EXPOSURE DURING PREGNANCY
     Dosage: MATERNAL DOSE: 3 MG/KG, QD
     Route: 064

REACTIONS (3)
  - Premature baby [Unknown]
  - Foetal exposure during pregnancy [Unknown]
  - Congenital diaphragmatic hernia [Unknown]
